FAERS Safety Report 9339494 (Version 1)
Quarter: 2013Q2

REPORT INFORMATION
  Report Type: Spontaneous
  Country: US (occurrence: US)
  Receive Date: 20130610
  Receipt Date: 20130610
  Transmission Date: 20140414
  Serious: Yes (Hospitalization)
  Sender: FDA-Public Use
  Company Number: US-SANOFI-AVENTIS-2013SA055026

PATIENT
  Age: 72 Year
  Sex: Male

DRUGS (37)
  1. LASIX [Suspect]
     Indication: PRODUCT USED FOR UNKNOWN INDICATION
     Route: 065
     Dates: start: 20120305, end: 20120406
  2. ALEGLITAZAR [Concomitant]
     Dates: start: 20120221
  3. CARVEDILOL [Concomitant]
     Dates: start: 2006
  4. CRESTOR [Concomitant]
     Dates: start: 2011, end: 20120305
  5. CRESTOR [Concomitant]
     Dates: start: 20120407
  6. NITROSTAT [Concomitant]
  7. ASPIRIN [Concomitant]
     Dates: start: 2006
  8. LEVOTHROID [Concomitant]
     Dates: start: 2010
  9. METFORMIN [Concomitant]
  10. ALLOPURINOL [Concomitant]
     Dates: start: 1970, end: 20121201
  11. ADVAIR [Concomitant]
     Dosage: DOSE:2 PUFF(S)
     Dates: start: 2002
  12. VITAMIN C [Concomitant]
     Dates: start: 2000
  13. FISH OIL [Concomitant]
     Dates: start: 2000
  14. VITAMIN E [Concomitant]
     Dates: start: 2000
  15. LOSARTAN [Concomitant]
     Dates: start: 201202, end: 20120304
  16. LOSARTAN [Concomitant]
     Dates: start: 20120601
  17. NEXIUM [Concomitant]
     Dates: start: 201202, end: 20120305
  18. SERTRALINE [Concomitant]
     Dates: start: 201202, end: 20120304
  19. VALIUM [Concomitant]
     Dosage: DOSE: 2.5MG AS REQUIRED
     Dates: start: 20120305, end: 20120306
  20. SENOKOT /UNK/ [Concomitant]
     Dates: start: 20120305, end: 20120306
  21. INSULIN LISPRO [Concomitant]
     Dates: start: 20120305, end: 20120406
  22. PROTONIX [Concomitant]
     Dates: start: 20120305, end: 20120406
  23. ALBUTEROL [Concomitant]
     Dates: start: 20120305, end: 20120406
  24. DILAUDID [Concomitant]
     Dosage: DOSE: 0.25 MG AS REQUIRED
     Dates: start: 20120305, end: 20120406
  25. ZOFRAN [Concomitant]
     Dosage: 2 MG AS REQUIRED
     Dates: start: 20120305, end: 20120406
  26. OXYGEN [Concomitant]
     Dates: start: 20120305, end: 20120406
  27. WELLBUTRIN [Concomitant]
     Dates: start: 20120305, end: 20120406
  28. ARICEPT [Concomitant]
     Dates: start: 20120305, end: 20120406
  29. LOVENOX [Concomitant]
     Dates: start: 20120305, end: 20120406
  30. LIDODERM [Concomitant]
     Dosage: 5% AS REQUIRED
     Dates: start: 20120305, end: 20120406
  31. MAGNESIUM OXIDE [Concomitant]
     Dates: start: 20120305, end: 20120406
  32. POTASSIUM CHLORIDE [Concomitant]
     Dates: start: 20120305, end: 20120406
  33. POTASSIUM CHLORIDE [Concomitant]
     Dates: start: 20120601
  34. FLOMAX [Concomitant]
     Dates: start: 20120305
  35. AMITRIPTYLINE [Concomitant]
     Dates: start: 20120601
  36. ESCITALOPRAM [Concomitant]
     Dates: start: 20120601
  37. FUROSEMIDE [Concomitant]
     Dates: start: 20120601

REACTIONS (1)
  - Syncope [Recovered/Resolved]
